FAERS Safety Report 7466794-6 (Version None)
Quarter: 2011Q2

REPORT INFORMATION
  Report Type: 
  Country: None (occurrence: None)
  Receive Date: 20110509
  Receipt Date: 20110124
  Transmission Date: 20111010
  Serious: No
  Sender: FDA-Public Use
  Company Number: US-SANOFI-AVENTIS-2011SA005315

PATIENT
  Age: 79 Year
  Sex: Female

DRUGS (5)
  1. SOLOSTAR [Suspect]
     Dates: start: 20090101
  2. LANTUS [Suspect]
     Dosage: DOSE:14 UNIT(S)
     Route: 058
     Dates: start: 20110101
  3. LANTUS [Suspect]
     Dosage: DOSE:16 UNIT(S)
     Route: 058
     Dates: start: 20090101, end: 20110101
  4. APIDRA [Suspect]
     Dosage: 6 TO 7 UNITS ONCE AT DINNER
     Route: 058
     Dates: start: 20100101
  5. SOLOSTAR [Suspect]
     Dates: start: 20100101

REACTIONS (2)
  - HYPERHIDROSIS [None]
  - GLYCOSYLATED HAEMOGLOBIN INCREASED [None]
